FAERS Safety Report 9974758 (Version 1)
Quarter: 2014Q1

REPORT INFORMATION
  Report Type: Report from Study
  Country: US (occurrence: US)
  Receive Date: 20140306
  Receipt Date: 20140306
  Transmission Date: 20141002
  Serious: No
  Sender: FDA-Public Use
  Company Number: US-ABBVIE-13P-163-1156744-00

PATIENT
  Age: 49 Year
  Sex: Female

DRUGS (3)
  1. HUMIRA [Suspect]
     Indication: CROHN^S DISEASE
     Dates: start: 20130816, end: 20130924
  2. HYDROCODONE [Concomitant]
     Indication: ABDOMINAL PAIN
     Dosage: 10/325 MG EVERY 8 HOURS AS NEEDED
  3. BENTYL [Concomitant]
     Indication: GASTROINTESTINAL PAIN

REACTIONS (3)
  - Swelling face [Not Recovered/Not Resolved]
  - Eye swelling [Not Recovered/Not Resolved]
  - Rash [Not Recovered/Not Resolved]
